FAERS Safety Report 6556244-6 (Version None)
Quarter: 2010Q1

REPORT INFORMATION
  Report Type: 
  Country: None (occurrence: None)
  Receive Date: 20100128
  Receipt Date: 20090819
  Transmission Date: 20100710
  Serious: No
  Sender: FDA-Public Use
  Company Number: US-TEVA-206551USA

PATIENT
  Sex: Female

DRUGS (5)
  1. COPAXONE [Suspect]
     Indication: RELAPSING-REMITTING MULTIPLE SCLEROSIS
     Route: 058
  2. QUETIAPINE [Concomitant]
  3. BACLOFEN [Concomitant]
  4. ERGOCALCIFEROL [Concomitant]
  5. ACICLOVIR [Concomitant]
     Dosage: SUSPENSION

REACTIONS (4)
  - INJECTION SITE EXFOLIATION [None]
  - INJECTION SITE IRRITATION [None]
  - INJECTION SITE SCAB [None]
  - INJECTION SITE SCAR [None]
